FAERS Safety Report 7235251-4 (Version None)
Quarter: 2011Q1

REPORT INFORMATION
  Report Type: 
  Country: None (occurrence: None)
  Receive Date: 20110120
  Receipt Date: 20110112
  Transmission Date: 20110831
  Serious: No
  Sender: FDA-Public Use
  Company Number: GB-JNJFOC-20101007409

PATIENT
  Sex: Female

DRUGS (4)
  1. ORAMORPH SR [Suspect]
     Indication: ILL-DEFINED DISORDER
     Route: 065
  2. TRAMADOL HCL [Concomitant]
     Indication: PAIN
     Route: 065
  3. DURAGESIC-100 [Suspect]
     Indication: BACK PAIN
     Route: 062
  4. MEFENAMIC ACID [Concomitant]
     Indication: PAIN
     Route: 065

REACTIONS (4)
  - PRODUCT QUALITY ISSUE [None]
  - WRONG TECHNIQUE IN DRUG USAGE PROCESS [None]
  - HYPERHIDROSIS [None]
  - INADEQUATE ANALGESIA [None]
